FAERS Safety Report 13007265 (Version 1)
Quarter: 2016Q4

REPORT INFORMATION
  Report Type: Report from Study
  Country: GR (occurrence: GR)
  Receive Date: 20161207
  Receipt Date: 20161207
  Transmission Date: 20170207
  Serious: Yes (Hospitalization)
  Sender: FDA-Public Use
  Company Number: PHHO2012GR021941

PATIENT
  Age: 74 Year
  Sex: Male
  Weight: 84 kg

DRUGS (2)
  1. BENDAMUSTINE [Suspect]
     Active Substance: BENDAMUSTINE
     Indication: NON-HODGKIN^S LYMPHOMA
     Dosage: 90 MG/M2, CYCLIC
     Route: 042
     Dates: start: 20120316
  2. OFATUMUMAB [Suspect]
     Active Substance: OFATUMUMAB
     Indication: NON-HODGKIN^S LYMPHOMA
     Dosage: 1000 MG, CYCLIC
     Route: 042
     Dates: start: 20120315

REACTIONS (1)
  - Febrile neutropenia [Recovered/Resolved]

NARRATIVE: CASE EVENT DATE: 20120316
